FAERS Safety Report 18794450 (Version 2)
Quarter: 2021Q1

REPORT INFORMATION
  Report Type: Spontaneous
  Country: CA (occurrence: CA)
  Receive Date: 20210127
  Receipt Date: 20210129
  Transmission Date: 20210419
  Serious: Yes (Other)
  Sender: FDA-Public Use
  Company Number: CA-PFIZER INC-2021029183

PATIENT
  Age: 50 Year
  Sex: Female

DRUGS (13)
  1. HYDROMORPHONE HYDROCHLORIDE. [Suspect]
     Active Substance: HYDROMORPHONE HYDROCHLORIDE
     Dosage: 1 MG/H (INFUSION RATE 1MG/H TO REPLACE THE 100LG/H FENTANYL PATCH APPROXIMATELY 6H POST PATCH REMOVA
     Route: 058
  2. ACETAMINOPHEN. [Concomitant]
     Active Substance: ACETAMINOPHEN
     Dosage: UNK
  3. FENTANYL. [Suspect]
     Active Substance: FENTANYL
     Indication: PAIN
     Dosage: 200UG/H TO 100UG/H (REDUCTION IN THE STRENGTH OF FENTANYL PATCH )
     Route: 062
  4. HYDROMORPHONE HYDROCHLORIDE. [Suspect]
     Active Substance: HYDROMORPHONE HYDROCHLORIDE
     Dosage: 0.3 MG/H (REDUCED TO 0.3MG/H ON DAY 3, HOUR 48)
     Route: 058
  5. FENTANYL. [Suspect]
     Active Substance: FENTANYL
     Dosage: 100 UG PATCH APPLIED EVERY 72 H
     Route: 062
  6. HYDROMORPHONE HYDROCHLORIDE. [Suspect]
     Active Substance: HYDROMORPHONE HYDROCHLORIDE
     Dosage: 0.6 MG/H (TWO BREAKTHROUGH DOSES 0.6MG EACH ON DAY 1 AT HOUR 8 AND HOUR 12)
     Route: 058
  7. HYDROMORPHONE HYDROCHLORIDE. [Suspect]
     Active Substance: HYDROMORPHONE HYDROCHLORIDE
     Dosage: 0.4 MG/H (REDUCED TO 0.4MG/H ON DAY 2, HOUR 28)
     Route: 058
  8. HYDROMORPHONE HYDROCHLORIDE. [Suspect]
     Active Substance: HYDROMORPHONE HYDROCHLORIDE
     Dosage: 0.2 MG/H (REDUCED TO 0.2MG/H ON DAY 4)
     Route: 058
  9. DEXAMETHASONE. [Concomitant]
     Active Substance: DEXAMETHASONE
     Dosage: UNK
  10. HYDROMORPHONE HYDROCHLORIDE. [Suspect]
     Active Substance: HYDROMORPHONE HYDROCHLORIDE
     Indication: PAIN
     Dosage: 1 MG/H (FREQUENT BREAKTHROUGH DOSES, EVERY HOUR AS NEEDED)
     Route: 058
  11. HYDROMORPHONE HYDROCHLORIDE. [Suspect]
     Active Substance: HYDROMORPHONE HYDROCHLORIDE
     Indication: DYSPNOEA
     Dosage: 8MG TO 12MG PER 24H (MULTIPLE BREAKTHROUGH DOSES RANGINH FROM 8 TO 12 MG PER 24H)
     Route: 058
  12. HYDROMORPHONE HYDROCHLORIDE. [Suspect]
     Active Substance: HYDROMORPHONE HYDROCHLORIDE
     Dosage: 0.5 MG/H (INFUSION WAS HELD FOR 3H THEN RESTARTED AT 0.5MG/H, A 50% DOSE REDUCTION)
     Route: 058
  13. HYDROMORPHONE HYDROCHLORIDE. [Suspect]
     Active Substance: HYDROMORPHONE HYDROCHLORIDE
     Dosage: 0.3 MG/H (INCREASED TO 0.3MG/H AND REMAINED AT THIS RATE UNTIL DAY 14)
     Route: 058

REACTIONS (1)
  - Toxicity to various agents [Recovered/Resolved]
